FAERS Safety Report 20512333 (Version 1)
Quarter: 2022Q1

REPORT INFORMATION
  Report Type: Spontaneous
  Country: US (occurrence: None)
  Receive Date: 20220223
  Receipt Date: 20220223
  Transmission Date: 20220423
  Serious: Yes (Hospitalization, Disabling)
  Sender: FDA-Public Use
  Company Number: None

PATIENT
  Age: 56 Year
  Sex: Female

DRUGS (10)
  1. ENBREL [Suspect]
     Active Substance: ETANERCEPT
     Indication: Psoriatic arthropathy
     Dosage: OTHER QUANTITY : 1 INJECTION(S);?OTHER FREQUENCY : EVERY 7 DAYS;?
     Dates: start: 20211108, end: 20211220
  2. LEVOTHYROXINE [Concomitant]
     Active Substance: LEVOTHYROXINE
  3. HYDRALAZINE [Concomitant]
     Active Substance: HYDRALAZINE HYDROCHLORIDE
  4. AMLODIPINE [Concomitant]
     Active Substance: AMLODIPINE BESYLATE
  5. GABAPENTIN [Concomitant]
     Active Substance: GABAPENTIN
  6. HYDROXYZINE [Concomitant]
     Active Substance: HYDROXYZINE HYDROCHLORIDE
  7. METOPROLOL [Concomitant]
     Active Substance: METOPROLOL
  8. OLMESARTAN [Concomitant]
     Active Substance: OLMESARTAN
  9. EPIPEN [Concomitant]
     Active Substance: EPINEPHRINE
  10. RINVOQ [Concomitant]
     Active Substance: UPADACITINIB

REACTIONS (12)
  - Influenza like illness [None]
  - Chills [None]
  - Hot flush [None]
  - Fatigue [None]
  - Arthralgia [None]
  - Respiratory tract congestion [None]
  - Arthralgia [None]
  - Therapy cessation [None]
  - Cellulitis [None]
  - Sepsis [None]
  - Bursa disorder [None]
  - Skin discolouration [None]

NARRATIVE: CASE EVENT DATE: 20211219
